FAERS Safety Report 7945686-X (Version None)
Quarter: 2011Q4

REPORT INFORMATION
  Report Type: 
  Country: None (occurrence: None)
  Receive Date: 20111129
  Receipt Date: 20111124
  Transmission Date: 20120403
  Serious: Yes (Death, Other)
  Sender: FDA-Public Use
  Company Number: SK-PFIZER INC-2011147597

PATIENT
  Age: 70 Year
  Sex: Male

DRUGS (1)
  1. SUNITINIB MALATE [Suspect]
     Indication: RENAL CANCER
     Dosage: 50 MG, 1X/DAY, 4 WEEKS ON, 2 WEEKS OFF
     Dates: start: 20070701, end: 20090801

REACTIONS (8)
  - RENAL CANCER [None]
  - HYPERTENSION [None]
  - ASTHENIA [None]
  - APHASIA [None]
  - LEUKOENCEPHALOPATHY [None]
  - DISEASE PROGRESSION [None]
  - HYPOTHYROIDISM [None]
  - HEMIPARESIS [None]
